FAERS Safety Report 6082885-9 (Version None)
Quarter: 2009Q1

REPORT INFORMATION
  Report Type: 
  Country: None (occurrence: None)
  Receive Date: 20090130
  Receipt Date: 20061219
  Transmission Date: 20090719
  Serious: Yes (Hospitalization)
  Sender: FDA-Public Use
  Company Number: 258439

PATIENT
  Age: 48 Year
  Sex: Male
  Weight: 70.7 kg

DRUGS (4)
  1. NOVOLOG [Suspect]
     Indication: INSULIN-REQUIRING TYPE 2 DIABETES MELLITUS
     Dosage: SLIDING SCALE, SUBCUTAN.-PUMP
     Dates: start: 19790101
  2. LISINOPRIL [Concomitant]
  3. NEURONTIN [Concomitant]
  4. RANITIDINE /00550802/ (RANITIDINE HYDROCHLORIDE) [Concomitant]

REACTIONS (1)
  - BLOOD GLUCOSE INCREASED [None]
